FAERS Safety Report 8471334-9 (Version None)
Quarter: 2012Q2

REPORT INFORMATION
  Report Type: 
  Country: None (occurrence: None)
  Receive Date: 20120627
  Receipt Date: 20120620
  Transmission Date: 20120825
  Serious: Yes (Other)
  Sender: FDA-Public Use
  Company Number: GB-B.I. PHARMACEUTICALS,INC./RIDGEFIELD-2012-UK-00820UK

PATIENT
  Age: 83 Year
  Sex: Male
  Weight: 70 kg

DRUGS (17)
  1. SILDENAFIL [Concomitant]
     Dates: start: 20120608
  2. SPIRIVA [Suspect]
     Dates: start: 20120113
  3. AMLODIPINE [Concomitant]
     Dates: start: 20120113
  4. SENNA-MINT WAF [Concomitant]
     Dates: start: 20120113
  5. VENTOLIN [Concomitant]
     Dates: start: 20120402
  6. AMOXICILLIN [Concomitant]
     Dates: start: 20120410, end: 20120417
  7. ASPIRIN [Concomitant]
     Dates: start: 20120113
  8. ALBUTEROL [Concomitant]
     Dates: start: 20120421, end: 20120426
  9. UNGUENTUM M [Concomitant]
     Dates: start: 20120402, end: 20120430
  10. IBUPROFEN [Concomitant]
     Dates: start: 20120402, end: 20120412
  11. ACETAMINOPHEN [Concomitant]
     Dates: start: 20120402, end: 20120414
  12. RANITIDE [Concomitant]
     Dates: start: 20120402, end: 20120502
  13. ALBUTEROL [Concomitant]
     Dates: start: 20120410, end: 20120415
  14. PREDNISOLONE [Concomitant]
     Dates: start: 20120410, end: 20120417
  15. ALBUTEROL [Concomitant]
     Dates: start: 20120402, end: 20120407
  16. SALMETEROL [Concomitant]
     Dates: start: 20120521
  17. VOLUMATIC [Concomitant]
     Dates: start: 20120523, end: 20120524

REACTIONS (1)
  - ERECTILE DYSFUNCTION [None]
